FAERS Safety Report 7936227-1 (Version None)
Quarter: 2011Q4

REPORT INFORMATION
  Report Type: 
  Country: None (occurrence: None)
  Receive Date: 20111123
  Receipt Date: 20111118
  Transmission Date: 20120403
  Serious: Yes (Hospitalization, Other)
  Sender: FDA-Public Use
  Company Number: US-PFIZER INC-2011284279

PATIENT
  Sex: Male

DRUGS (2)
  1. LYRICA [Suspect]
     Dosage: UNK
  2. LAMICTAL XR [Suspect]
     Dosage: UNK
     Dates: start: 20081206

REACTIONS (2)
  - CONVULSION [None]
  - CARDIAC DISORDER [None]
